FAERS Safety Report 7020440-4 (Version None)
Quarter: 2010Q3

REPORT INFORMATION
  Report Type: 
  Country: None (occurrence: None)
  Receive Date: 20100929
  Receipt Date: 20100920
  Transmission Date: 20110219
  Serious: Yes (Hospitalization)
  Sender: FDA-Public Use
  Company Number: DE-ASTRAZENECA-2010SE44357

PATIENT
  Sex: Female
  Weight: 106 kg

DRUGS (1)
  1. IRESSA [Suspect]
     Indication: BRONCHIAL CARCINOMA
     Route: 048
     Dates: start: 20100601

REACTIONS (1)
  - RENAL FAILURE [None]
